FAERS Safety Report 7487474-7 (Version None)
Quarter: 2011Q1

REPORT INFORMATION
  Report Type: 
  Country: None (occurrence: None)
  Receive Date: 20110309
  Receipt Date: 20101130
  Transmission Date: 20110831
  Serious: No
  Sender: FDA-Public Use
  Company Number: 2010SP062549

PATIENT
  Age: 54 Year
  Sex: Male

DRUGS (4)
  1. VALPROIC ACID [Concomitant]
  2. SAPHRIS [Suspect]
     Indication: BIPOLAR DISORDER
     Dosage: 10 MG;HS;SL
     Route: 060
     Dates: start: 20101124
  3. RITALIN [Concomitant]
  4. LEVOTHYROXINE SODIUM [Concomitant]

REACTIONS (3)
  - ERECTILE DYSFUNCTION [None]
  - INAPPROPRIATE SCHEDULE OF DRUG ADMINISTRATION [None]
  - STOMATITIS [None]
